FAERS Safety Report 23760517 (Version 1)
Quarter: 2024Q2

REPORT INFORMATION
  Report Type: Report from Study
  Country: US (occurrence: US)
  Receive Date: 20240419
  Receipt Date: 20240419
  Transmission Date: 20240716
  Serious: Yes (Other)
  Sender: FDA-Public Use
  Company Number: US-ABBVIE-5722893

PATIENT
  Sex: Female

DRUGS (1)
  1. VENCLEXTA [Suspect]
     Active Substance: VENETOCLAX
     Indication: Product used for unknown indication
     Route: 048
     Dates: start: 20230424

REACTIONS (4)
  - Squamous cell carcinoma [Recovering/Resolving]
  - Postoperative wound infection [Unknown]
  - Post procedural inflammation [Unknown]
  - Nasopharyngitis [Unknown]
